FAERS Safety Report 7547809-3 (Version None)
Quarter: 2011Q2

REPORT INFORMATION
  Report Type: 
  Country: None (occurrence: None)
  Receive Date: 20110615
  Receipt Date: 20110606
  Transmission Date: 20111010
  Serious: Yes (Death, Hospitalization)
  Sender: FDA-Public Use
  Company Number: US-BIOGENIDEC-2011BI013837

PATIENT
  Age: 58 Year
  Sex: Female

DRUGS (5)
  1. TYSABRI [Suspect]
     Indication: MULTIPLE SCLEROSIS
     Route: 042
     Dates: start: 20100414, end: 20100824
  2. PAXIL [Concomitant]
     Indication: DEPRESSION
     Route: 048
  3. AMLODIPINE [Concomitant]
     Indication: HYPERTENSION
     Route: 048
  4. GLIPIZIDE [Concomitant]
     Indication: DIABETES MELLITUS
     Route: 048
  5. HYDROCHLOROTHIAZIDE [Concomitant]
     Indication: HYPERTENSION

REACTIONS (8)
  - RENAL FAILURE ACUTE [None]
  - HAEMORRHAGIC ANAEMIA [None]
  - FUNGAL SEPSIS [None]
  - HIP FRACTURE [None]
  - HYPOMAGNESAEMIA [None]
  - RESPIRATORY FAILURE [None]
  - BACTERIAL SEPSIS [None]
  - HYPONATRAEMIA [None]
